FAERS Safety Report 4836527-8 (Version None)
Quarter: 2005Q4

REPORT INFORMATION
  Report Type: 
  Country: None (occurrence: None)
  Receive Date: 20051118
  Receipt Date: 20051031
  Transmission Date: 20060501
  Serious: Yes (Other)
  Sender: FDA-Public Use
  Company Number: 2005154665

PATIENT
  Sex: Female

DRUGS (2)
  1. PREDNISONE [Suspect]
     Indication: THROMBOCYTOPENIA
     Dosage: 60 MG (60 MG, 1 IN 1 D)
  2. IMMUNE GLOBULIN INTRAVENOUS (HUMAN) [Suspect]
     Indication: PLATELET COUNT DECREASED
     Dosage: UNIT DOSE 0.4 G/KG TOTAL DAILY 0.4 G/KG (1 IN 1 D), INTRAVENOUS
     Route: 042

REACTIONS (4)
  - CONDITION AGGRAVATED [None]
  - DRUG EXPOSURE DURING PREGNANCY [None]
  - DRUG INEFFECTIVE [None]
  - THROMBOCYTOPENIA [None]
